FAERS Safety Report 11629492 (Version 1)
Quarter: 2015Q4

REPORT INFORMATION
  Report Type: Spontaneous
  Country: US (occurrence: None)
  Receive Date: 20151013
  Receipt Date: 20151013
  Transmission Date: 20160304
  Serious: Yes (Other)
  Sender: FDA-Public Use
  Company Number: None

PATIENT
  Age: 90 Year
  Sex: Female
  Weight: 65.7 kg

DRUGS (1)
  1. HEPARIN SODIUM INJECTION [Suspect]
     Active Substance: HEPARIN SODIUM
     Dosage: WEIGHT BASED DURING SURGERY
     Route: 042

REACTIONS (1)
  - Thrombosis [None]

NARRATIVE: CASE EVENT DATE: 20150826
